FAERS Safety Report 15019347 (Version 3)
Quarter: 2021Q1

REPORT INFORMATION
  Report Type: Spontaneous
  Country: GB (occurrence: GB)
  Receive Date: 20180617
  Receipt Date: 20210225
  Transmission Date: 20210419
  Serious: Yes (Hospitalization, Other)
  Sender: FDA-Public Use
  Company Number: PHHY2015GB177873

PATIENT
  Age: 50 Year
  Sex: Female

DRUGS (19)
  1. TRASTUZUMAB. [Suspect]
     Active Substance: TRASTUZUMAB
     Dosage: 900 MG, TIW (LOADING DOSE)
     Route: 042
     Dates: start: 20150722, end: 20150722
  2. LOPERAMIDE [Concomitant]
     Active Substance: LOPERAMIDE
     Indication: PROPHYLAXIS
     Dosage: 2 MG
     Route: 048
  3. TRASTUZUMAB. [Suspect]
     Active Substance: TRASTUZUMAB
     Dosage: 525 MG, TIW (MAINTENANCE DOSE)
     Route: 042
     Dates: start: 20180109
  4. BENDROFLUMETHIAZIDE [Concomitant]
     Active Substance: BENDROFLUMETHIAZIDE
     Dosage: 2.5 MG
     Route: 048
  5. TRASTUZUMAB. [Suspect]
     Active Substance: TRASTUZUMAB
     Dosage: 600 MG, TIW (MAINTENANCE DOSE)
     Route: 042
     Dates: start: 20150812, end: 20171219
  6. PERTUZUMAB. [Suspect]
     Active Substance: PERTUZUMAB
     Indication: BREAST CANCER METASTATIC
     Dosage: 840 MG, TIW (LOADING DOSE)
     Route: 042
     Dates: start: 20150722, end: 20150722
  7. PERTUZUMAB. [Suspect]
     Active Substance: PERTUZUMAB
     Dosage: 840 MG
     Route: 042
  8. DEXAMETHASONE. [Concomitant]
     Active Substance: DEXAMETHASONE
     Dosage: 2 MG
     Route: 048
  9. BENDROFLUMETHIAZIDE [Concomitant]
     Active Substance: BENDROFLUMETHIAZIDE
     Indication: PRODUCT USED FOR UNKNOWN INDICATION
     Dosage: UNK
     Route: 048
  10. NAPROXEN SODIUM. [Concomitant]
     Active Substance: NAPROXEN SODIUM
     Indication: PRODUCT USED FOR UNKNOWN INDICATION
     Dosage: UNK
     Route: 048
  11. TRASTUZUMAB. [Suspect]
     Active Substance: TRASTUZUMAB
     Dosage: 675 MG, TIW (MAINTENANCE DOSE)
     Route: 042
     Dates: start: 20150812, end: 20171219
  12. DEXAMETHASONE. [Concomitant]
     Active Substance: DEXAMETHASONE
     Indication: PROPHYLAXIS
     Dosage: UNK (3 DAYS STARTING A DAY BEFORE CHEMOTHERAPY)
     Route: 048
  13. DEXAMETHASONE. [Concomitant]
     Active Substance: DEXAMETHASONE
     Dosage: 2 MG (3 DAYS STARTING A DAY BEFORE CHEMOTHERAPY)
     Route: 048
     Dates: start: 20150806
  14. LOPERAMIDE [Concomitant]
     Active Substance: LOPERAMIDE
     Dosage: 2 MG (1 OR 2 CAPSULES MAXIMUM 8 TIMES A DAY)
     Route: 048
     Dates: start: 20150804, end: 20180323
  15. TRASTUZUMAB. [Suspect]
     Active Substance: TRASTUZUMAB
     Indication: BREAST CANCER METASTATIC
     Dosage: 900 MG
     Route: 042
  16. DOCETAXEL. [Suspect]
     Active Substance: DOCETAXEL
     Indication: BREAST CANCER METASTATIC
     Dosage: 160 MG, TIW (ON 04/NOV/2015, SHE COMPLETED PLANNED CYCLES OF DOCETAXEL)
     Route: 042
     Dates: start: 20150722
  17. PERTUZUMAB. [Suspect]
     Active Substance: PERTUZUMAB
     Dosage: 420 MG, TIW (MAINTENANCE DOSE)
     Route: 042
     Dates: start: 20150812, end: 20180220
  18. LETROZOLE. [Suspect]
     Active Substance: LETROZOLE
     Indication: BREAST CANCER METASTATIC
     Dosage: 2.5 MG, QD (FROM 24 NOV 2015)
     Route: 048
  19. DEXAMETHASONE. [Concomitant]
     Active Substance: DEXAMETHASONE
     Dosage: 2 MG
     Route: 048
     Dates: start: 20150901, end: 20150903

REACTIONS (23)
  - Urinary tract infection [Recovered/Resolved]
  - Myalgia [Recovered/Resolved]
  - Ejection fraction decreased [Recovered/Resolved]
  - Myalgia [Recovered/Resolved]
  - Laryngitis [Unknown]
  - Neutropenic sepsis [Recovered/Resolved]
  - Dyspepsia [Recovered/Resolved]
  - Fatigue [Recovered/Resolved]
  - Oedema peripheral [Recovered/Resolved]
  - Dysphagia [Not Recovered/Not Resolved]
  - Bronchitis [Recovered/Resolved]
  - Erythema [Recovered/Resolved]
  - Myelosuppression [Recovered/Resolved]
  - Chest discomfort [Recovered/Resolved]
  - Ejection fraction decreased [Recovered/Resolved]
  - Nail dystrophy [Recovered/Resolved]
  - Decreased appetite [Recovered/Resolved]
  - Onychomadesis [Recovered/Resolved]
  - Neuropathy peripheral [Unknown]
  - Skin exfoliation [Unknown]
  - Dysgeusia [Recovered/Resolved]
  - Hypokalaemia [Recovered/Resolved]
  - Cellulitis [Recovered/Resolved]

NARRATIVE: CASE EVENT DATE: 20150813
